FAERS Safety Report 13491553 (Version 1)
Quarter: 2017Q2

REPORT INFORMATION
  Report Type: Report from Study
  Country: BR (occurrence: BR)
  Receive Date: 20170427
  Receipt Date: 20170427
  Transmission Date: 20170830
  Serious: Yes (Death)
  Sender: FDA-Public Use
  Company Number: PHHY2017BR062188

PATIENT
  Age: 85 Year
  Sex: Female
  Weight: 48 kg

DRUGS (3)
  1. EXELON PATCH [Suspect]
     Active Substance: RIVASTIGMINE
     Dosage: 9.5 MG, PATCH 10 (CM2), QD
     Route: 062
  2. EXELON PATCH [Suspect]
     Active Substance: RIVASTIGMINE
     Dosage: 13.3 MG, PATCH 15 (CM2) QD
     Route: 062
     Dates: start: 201610
  3. EXELON PATCH [Suspect]
     Active Substance: RIVASTIGMINE
     Indication: DEMENTIA ALZHEIMER^S TYPE
     Dosage: 4.6 MG, PATCH 5 (CM2), QD
     Route: 062
     Dates: start: 2014

REACTIONS (5)
  - Asthenia [Unknown]
  - Respiratory tract infection [Fatal]
  - Weight decreased [Unknown]
  - Inflammatory carcinoma of the breast [Fatal]
  - Decreased appetite [Unknown]

NARRATIVE: CASE EVENT DATE: 201701
